FAERS Safety Report 26050780 (Version 1)
Quarter: 2025Q4

REPORT INFORMATION
  Report Type: Spontaneous
  Country: US (occurrence: US)
  Receive Date: 20251116
  Receipt Date: 20251116
  Transmission Date: 20260118
  Serious: Yes (Other)
  Sender: AMNEAL
  Company Number: US-AMNEAL PHARMACEUTICALS-2025-AMRX-04330

PATIENT
  Sex: Male

DRUGS (2)
  1. DEXTROMETHORPHAN HYDROBROMIDE\GUAIFENESIN [Suspect]
     Active Substance: DEXTROMETHORPHAN HYDROBROMIDE\GUAIFENESIN
     Indication: Antitussive therapy
     Dosage: (1200MG + 60MG) 1 TABLET, EVERY 12HR
     Route: 048
     Dates: start: 20251103, end: 20251104
  2. DEXTROMETHORPHAN HYDROBROMIDE\GUAIFENESIN [Suspect]
     Active Substance: DEXTROMETHORPHAN HYDROBROMIDE\GUAIFENESIN
     Indication: Productive cough

REACTIONS (7)
  - Choking [Recovered/Resolved]
  - Oesophageal pain [Recovered/Resolved]
  - Abdominal pain upper [Recovered/Resolved]
  - Foreign body in throat [Recovered/Resolved]
  - Regurgitation [Recovered/Resolved]
  - Product size issue [Unknown]
  - Product substitution issue [Unknown]

NARRATIVE: CASE EVENT DATE: 20251103
